FAERS Safety Report 7720750-9 (Version None)
Quarter: 2011Q3

REPORT INFORMATION
  Report Type: 
  Country: None (occurrence: None)
  Receive Date: 20110831
  Receipt Date: 20110819
  Transmission Date: 20111222
  Serious: Yes (Death)
  Sender: FDA-Public Use
  Company Number: PL-ASTELLAS-2011EU005680

PATIENT
  Age: 10 Year
  Sex: Female

DRUGS (4)
  1. GLUCOCORTICOSTEROIDS [Concomitant]
     Indication: GRAFT VERSUS HOST DISEASE
     Dosage: UNK
     Route: 065
  2. MYCOPHENOLATE MOFETIL [Concomitant]
     Indication: GRAFT VERSUS HOST DISEASE
     Dosage: UNK
     Route: 065
  3. TACROLIMUS [Suspect]
     Indication: GRAFT VERSUS HOST DISEASE
     Dosage: 4 MG, UNKNOWN/D
     Route: 042
  4. CYCLOSPORINE [Concomitant]
     Indication: GRAFT VERSUS HOST DISEASE
     Dosage: UNK
     Route: 065

REACTIONS (2)
  - OFF LABEL USE [None]
  - LEUKOENCEPHALOPATHY [None]
